FAERS Safety Report 8164482-4 (Version None)
Quarter: 2012Q1

REPORT INFORMATION
  Report Type: 
  Country: None (occurrence: None)
  Receive Date: 20120224
  Receipt Date: 20120220
  Transmission Date: 20120608
  Serious: Yes (Life-Threatening)
  Sender: FDA-Public Use
  Company Number: FR-ASTRAZENECA-2012SE11779

PATIENT
  Age: 12970 Day
  Sex: Female

DRUGS (12)
  1. NALADOR [Suspect]
     Indication: POSTPARTUM HAEMORRHAGE
     Route: 042
     Dates: start: 20100423, end: 20100423
  2. ALDOMET [Concomitant]
     Indication: GESTATIONAL HYPERTENSION
  3. LEUCOVORIN CALCIUM [Concomitant]
  4. NAROPIN [Suspect]
     Indication: EPIDURAL ANAESTHESIA
     Route: 042
     Dates: start: 20100423, end: 20100423
  5. SUFENTA PRESERVATIVE FREE [Suspect]
     Indication: EPIDURAL ANAESTHESIA
     Route: 042
     Dates: start: 20100423, end: 20100423
  6. OMEPRAZOLE [Suspect]
     Indication: POSTPARTUM HAEMORRHAGE
     Dosage: 2 VIALS
     Route: 065
     Dates: start: 20100423, end: 20100423
  7. SYNTOCINON [Suspect]
     Indication: POSTPARTUM HAEMORRHAGE
     Dosage: 5 IU/500 ML, 15 ML/HOUR
     Route: 042
     Dates: start: 20100423, end: 20100423
  8. SYNTOCINON [Suspect]
     Dosage: 5 IU/500 ML, 45 ML/HOUR
     Route: 042
     Dates: start: 20100423, end: 20100423
  9. SYNTOCINON [Suspect]
     Dosage: 5 IU/500 ML, 200 ML/HOUR
     Route: 042
     Dates: start: 20100423, end: 20100423
  10. ACETAMINOPHEN [Concomitant]
  11. PREDNISONE TAB [Concomitant]
  12. SULFASALAZINE [Concomitant]

REACTIONS (4)
  - ACUTE PULMONARY OEDEMA [None]
  - TROPONIN INCREASED [None]
  - CARDIAC FAILURE [None]
  - RESPIRATORY DISTRESS [None]
